FAERS Safety Report 4508293-7 (Version None)
Quarter: 2004Q4

REPORT INFORMATION
  Report Type: 
  Country: None (occurrence: None)
  Receive Date: 20041123
  Receipt Date: 20031219
  Transmission Date: 20050328
  Serious: Yes (Other)
  Sender: FDA-Public Use
  Company Number: US-GLAXOSMITHKLINE-A0443782A

PATIENT
  Age: 48 Year
  Sex: Male

DRUGS (4)
  1. WELLBUTRIN [Suspect]
     Indication: ILL-DEFINED DISORDER
     Route: 048
     Dates: start: 20031103
  2. HIV TREATMENTS (UNSPECIFIED) [Concomitant]
     Indication: HIV INFECTION
  3. LORAZEPAM [Concomitant]
  4. ELECTROCONVULSIVE THERAPY [Concomitant]

REACTIONS (1)
  - GRAND MAL CONVULSION [None]
